FAERS Safety Report 6504406-6 (Version None)
Quarter: 2009Q4

REPORT INFORMATION
  Report Type: 
  Country: None (occurrence: None)
  Receive Date: 20091215
  Receipt Date: 20091204
  Transmission Date: 20100525
  Serious: Yes (Death, Hospitalization)
  Sender: FDA-Public Use
  Company Number: 2009AC000497

PATIENT
  Age: 80 Year
  Sex: Male

DRUGS (4)
  1. DIGOXIN [Suspect]
     Dosage: 0.125 MG; PO
     Route: 048
     Dates: start: 20041201
  2. PROTONIX [Concomitant]
  3. WARFARIN [Concomitant]
  4. JANTOVEN [Concomitant]

REACTIONS (10)
  - ATRIAL FIBRILLATION [None]
  - ECONOMIC PROBLEM [None]
  - GASTROINTESTINAL HAEMORRHAGE [None]
  - HAEMORRHAGE [None]
  - HEART RATE INCREASED [None]
  - HYPONATRAEMIA [None]
  - HYPOTENSION [None]
  - MULTIPLE INJURIES [None]
  - SURGERY [None]
  - UNEVALUABLE EVENT [None]
